FAERS Safety Report 9200460 (Version 4)
Quarter: 2013Q2

REPORT INFORMATION
  Report Type: Spontaneous
  Country: JP (occurrence: JP)
  Receive Date: 20130329
  Receipt Date: 20130524
  Transmission Date: 20140414
  Serious: Yes (Hospitalization)
  Sender: FDA-Public Use
  Company Number: CHNY2013JP000853

PATIENT
  Age: 84 Year
  Sex: Female
  Weight: 41 kg

DRUGS (8)
  1. TAVEGYL [Suspect]
     Dosage: UNK, UNK
     Route: 048
     Dates: start: 20130215, end: 20130227
  2. EDIROL [Suspect]
     Dosage: UNK, UNK
     Route: 048
     Dates: start: 201204, end: 20130227
  3. NITOROL [Suspect]
     Dosage: UNK, UNK
     Route: 048
     Dates: start: 20130205, end: 20130227
  4. ASVERIN (TIPEPIDINE HIBENZATE) [Suspect]
     Dosage: UNK, UNK
     Route: 048
     Dates: start: 20130215, end: 20130227
  5. CONTOL [Suspect]
     Dosage: 10 MG, QD
     Route: 048
     Dates: start: 20130226, end: 20130227
  6. PELEX [Suspect]
     Dosage: 3 G, QD
     Route: 048
     Dates: start: 20130227, end: 20130227
  7. CALONAL [Suspect]
     Dosage: UNK, UNK
     Route: 048
     Dates: start: 20130227, end: 20130227
  8. CEFZON [Suspect]
     Dosage: 300 MG, QD
     Route: 048
     Dates: start: 20130227, end: 20130227

REACTIONS (6)
  - Aplastic anaemia [Recovered/Resolved]
  - White blood cell count decreased [Unknown]
  - Pyrexia [Unknown]
  - Inflammation [Not Recovered/Not Resolved]
  - Nasopharyngitis [Unknown]
  - Dizziness [Unknown]
